FAERS Safety Report 5086510-5 (Version None)
Quarter: 2006Q3

REPORT INFORMATION
  Report Type: 
  Country: None (occurrence: None)
  Receive Date: 20060821
  Receipt Date: 20060821
  Transmission Date: 20061208
  Serious: Yes (Hospitalization, Other)
  Sender: FDA-Public Use
  Company Number: None

PATIENT
  Sex: Male
  Weight: 104.3273 kg

DRUGS (8)
  1. ENBREL [Suspect]
     Indication: PSORIASIS
     Dosage: 50MG  TWICE WEEKLY   SQ
     Route: 058
     Dates: start: 20060530, end: 20060804
  2. AVANDIA [Concomitant]
  3. TOPROL-XL [Concomitant]
  4. ASPIRIN [Concomitant]
  5. DSS [Concomitant]
  6. COUMADIN [Concomitant]
  7. AMBIEN [Concomitant]
  8. HYDROCODONE BITARTRATE [Concomitant]

REACTIONS (4)
  - BACTERAEMIA [None]
  - HAEMATOCRIT DECREASED [None]
  - HAEMOGLOBIN DECREASED [None]
  - STAPHYLOCOCCAL INFECTION [None]
